FAERS Safety Report 10504638 (Version 7)
Quarter: 2015Q3

REPORT INFORMATION
  Report Type: Spontaneous
  Country: US (occurrence: US)
  Receive Date: 20141008
  Receipt Date: 20150805
  Transmission Date: 20151125
  Serious: Yes (Hospitalization, Other)
  Sender: FDA-Public Use
  Company Number: US-PFIZER INC-2014273357

PATIENT
  Age: 59 Year
  Sex: Female
  Weight: 106 kg

DRUGS (38)
  1. XELJANZ [Suspect]
     Active Substance: TOFACITINIB CITRATE
     Dosage: 5 MG, 2X/DAY
     Route: 048
     Dates: start: 201310, end: 201412
  2. VOLTAREN [Concomitant]
     Active Substance: DICLOFENAC SODIUM
     Dosage: 75 MG, 2X/DAY
     Dates: start: 2009
  3. PREMARIN [Concomitant]
     Active Substance: ESTROGENS, CONJUGATED
     Dosage: 0.625 MG, DAILY
     Route: 048
  4. SIMPONI [Concomitant]
     Active Substance: GOLIMUMAB
     Dosage: 50 MG, MONTHLY
     Route: 058
  5. METHOTREXATE [Concomitant]
     Active Substance: METHOTREXATE
     Dosage: 2.5 MG, WEEKLY (TAKE 6 TABLET BY MOUTH ONCE WEEKLY)
     Route: 048
  6. FLEXERIL [Concomitant]
     Active Substance: CYCLOBENZAPRINE HYDROCHLORIDE
     Dosage: 10 MG, 1X/DAY
     Dates: start: 2010
  7. GABAPENTIN. [Concomitant]
     Active Substance: GABAPENTIN
     Dosage: 300 MG, UNK
     Route: 048
  8. FENTANYL TRANSDERMAL SYSTEM [Concomitant]
     Active Substance: FENTANYL
     Dosage: 75 ?G, UNK (72 HOUR)
     Route: 062
  9. INDERAL [Concomitant]
     Active Substance: PROPRANOLOL HYDROCHLORIDE
     Dosage: 40 MG, 2X/DAY
     Dates: start: 1987
  10. PREMARIN [Concomitant]
     Active Substance: ESTROGENS, CONJUGATED
     Dosage: 0.425 MG, 1X/DAY
     Dates: start: 2005
  11. FLEXERIL [Concomitant]
     Active Substance: CYCLOBENZAPRINE HYDROCHLORIDE
     Dosage: 10 MG, 3X/DAY (TAKE 1 TABLET 3 TIMES DAILY-AS NEEDED)
  12. METHOTREXATE [Concomitant]
     Active Substance: METHOTREXATE
     Dosage: 2.5 MG (6 ON WEDNESDAY)
     Dates: start: 2000
  13. LISINOPRIL. [Concomitant]
     Active Substance: LISINOPRIL
     Dosage: 10 MG, 1X/DAY
     Dates: start: 2013
  14. NEURONTIN [Concomitant]
     Active Substance: GABAPENTIN
     Dosage: 300 MG, EVERY 4 HRS
     Dates: start: 2008
  15. XELJANZ [Suspect]
     Active Substance: TOFACITINIB CITRATE
     Dosage: 5 MG, 2X/DAY
     Route: 048
     Dates: start: 20131011, end: 20141215
  16. NEXIUM [Concomitant]
     Active Substance: ESOMEPRAZOLE MAGNESIUM
     Dosage: 40 MG, DAILY
     Route: 048
  17. DILAUDID [Concomitant]
     Active Substance: HYDROMORPHONE HYDROCHLORIDE
     Dosage: 4 UNK, UNK (1-2 TABLETS WEEKLY AS NEEDED)
     Route: 048
  18. DICLOFENAC SODIUM. [Concomitant]
     Active Substance: DICLOFENAC SODIUM
     Dosage: 75 MG, 2X/DAY (TAKE 1 TABLET TWICE DAILY TAKE WITH FOOD)
     Route: 048
  19. PREDNISONE. [Concomitant]
     Active Substance: PREDNISONE
     Dosage: 7 MG, DAILY
     Dates: start: 1985
  20. VOLTAREN [Concomitant]
     Active Substance: DICLOFENAC SODIUM
     Dosage: 1 %, AS NEEDED (GE1;APPLY 4 GRAMS QID TO KNEES, 2 GRAMS QID TO HANDS PRN)
  21. FENTANYL TRANSDERMAL SYSTEM [Concomitant]
     Active Substance: FENTANYL
     Dosage: 75 ?G, (EVERY 72 HRS)
     Dates: start: 201210
  22. LORTAB [Concomitant]
     Active Substance: ACETAMINOPHEN\HYDROCODONE BITARTRATE
     Dosage: 1 DF, AS NEEDED (1 TAB EVERY 4-6 HOURS AS NEEDED) (HYDROCODONE BITARTRATE 7.5 MG+ PCM 500 MG)
  23. SOMA [Concomitant]
     Active Substance: CARISOPRODOL
     Dosage: 350 MG, DAILY (TAKE 2 TABLET BEDTIME)
     Route: 048
  24. FOLIC ACID. [Concomitant]
     Active Substance: FOLIC ACID
     Dosage: 1 MG, DAILY
     Route: 048
  25. XELJANZ [Suspect]
     Active Substance: TOFACITINIB CITRATE
     Indication: RHEUMATOID ARTHRITIS
     Dosage: 10MG  2X/DAY
     Dates: start: 201310, end: 201409
  26. METHOTREXATE [Concomitant]
     Active Substance: METHOTREXATE
     Dosage: UNK
     Dates: start: 1999
  27. LORTAB [Concomitant]
     Active Substance: ACETAMINOPHEN\HYDROCODONE BITARTRATE
     Indication: PAIN
     Dosage: 7.5 MG, EVERY 4 HRS
     Dates: start: 2000
  28. DILAUDID [Concomitant]
     Active Substance: HYDROMORPHONE HYDROCHLORIDE
     Dosage: 4 MG, 1-2 A DAY NORMALLY BEDTIME)
     Dates: start: 2013
  29. CALCIUM + VIT D [Concomitant]
     Active Substance: CALCIUM\VITAMIN D
     Dosage: 1 DF, 2X/DAY (CALCIUM CARBONATE 600MG+VITAMIN D 600- 400 MG)
     Route: 048
  30. AMBIEN [Concomitant]
     Active Substance: ZOLPIDEM TARTRATE
     Dosage: 5 MG, AS NEEDED (TAKE 1 TABLET AT BEDTIME AS NEEDED)
     Route: 048
  31. RECLAST SOLN [Concomitant]
  32. PREDNISONE. [Concomitant]
     Active Substance: PREDNISONE
     Dosage: UNK
     Dates: start: 1989
  33. VOLTAREN [Concomitant]
     Active Substance: DICLOFENAC SODIUM
     Indication: PAIN
     Dosage: UNK
     Dates: start: 1999
  34. NEXIUM [Concomitant]
     Active Substance: ESOMEPRAZOLE MAGNESIUM
     Dosage: 40 MG, 2X/DAY
     Dates: start: 2009
  35. SOMA [Concomitant]
     Active Substance: CARISOPRODOL
     Dosage: 350 MG, 3X/DAY
     Dates: start: 2004
  36. CALCIUM + VIT D [Concomitant]
     Active Substance: CALCIUM\VITAMIN D
     Dosage: 600 MG, UNK
  37. PULMICORT FLEXHALER [Concomitant]
     Active Substance: BUDESONIDE
     Dosage: 1 DF, AS NEEDED (90 MCG/ACRI^ INHALATION, INHALE 1 PUFFS AS NEEDED PRN)
  38. ESTROVEN [Concomitant]
     Active Substance: DIETARY SUPPLEMENT
     Dosage: UNK, 1X/DAY

REACTIONS (13)
  - Scoliosis [Unknown]
  - Pyrexia [Unknown]
  - Spinal disorder [Not Recovered/Not Resolved]
  - Arthropathy [Not Recovered/Not Resolved]
  - Neck pain [Unknown]
  - Condition aggravated [Not Recovered/Not Resolved]
  - Stress fracture [Unknown]
  - Epigastric discomfort [Recovered/Resolved]
  - Urinary tract infection [Not Recovered/Not Resolved]
  - Joint swelling [Unknown]
  - Rheumatoid arthritis [Not Recovered/Not Resolved]
  - Drug ineffective [Unknown]
  - Osteoporosis [Unknown]

NARRATIVE: CASE EVENT DATE: 201312
